FAERS Safety Report 13858716 (Version 3)
Quarter: 2017Q4

REPORT INFORMATION
  Report Type: Spontaneous
  Country: US (occurrence: US)
  Receive Date: 20170811
  Receipt Date: 20171004
  Transmission Date: 20180320
  Serious: No
  Sender: FDA-Public Use
  Company Number: US-ELI_LILLY_AND_COMPANY-US201707004587

PATIENT
  Sex: Female

DRUGS (2)
  1. FORTEO [Suspect]
     Active Substance: TERIPARATIDE
     Indication: OSTEOPOROSIS
     Dosage: 20 UG, UNKNOWN
     Route: 058
     Dates: start: 20170612
  2. FORTEO [Suspect]
     Active Substance: TERIPARATIDE
     Dosage: UNK, UNKNOWN
     Route: 058

REACTIONS (8)
  - Hypoglycaemia [Unknown]
  - Drug dose omission [Unknown]
  - Blood calcium increased [Unknown]
  - Nausea [Unknown]
  - Frustration tolerance decreased [Unknown]
  - Discomfort [Unknown]
  - Product storage error [Unknown]
  - Fatigue [Unknown]
